FAERS Safety Report 8851719 (Version 1)
Quarter: 2012Q4

REPORT INFORMATION
  Report Type: Spontaneous
  Country: US (occurrence: None)
  Receive Date: 20121017
  Receipt Date: 20121017
  Transmission Date: 20130627
  Serious: Yes (Life-Threatening, Hospitalization, Other)
  Sender: FDA-Public Use
  Company Number: LMI-2012-00307

PATIENT
  Age: 50 Year
  Sex: Male
  Weight: 140.62 kg

DRUGS (1)
  1. DEFINITY [Suspect]
     Indication: STRESS ECHOCARDIOGRAM
     Dosage: injection
     Dates: start: 20120920, end: 20120920

REACTIONS (4)
  - Ventricular tachycardia [None]
  - Ventricular fibrillation [None]
  - Acute myocardial infarction [None]
  - Mitral valve incompetence [None]
